FAERS Safety Report 14168304 (Version 1)
Quarter: 2017Q4

REPORT INFORMATION
  Report Type: Spontaneous
  Country: US (occurrence: US)
  Receive Date: 20171107
  Receipt Date: 20171107
  Transmission Date: 20180321
  Serious: No
  Sender: FDA-Public Use
  Company Number: US-SA-2017SA133179

PATIENT
  Age: 59 Year
  Sex: Male

DRUGS (3)
  1. SOLOSTAR [Concomitant]
     Active Substance: DEVICE
     Indication: TYPE 2 DIABETES MELLITUS
     Dates: start: 201707
  2. LANTUS [Concomitant]
     Active Substance: INSULIN GLARGINE
     Dosage: DOSE: 95 UNITS AM/ 85 UNITS PM
     Route: 065
  3. TOUJEO [Suspect]
     Active Substance: INSULIN GLARGINE
     Indication: TYPE 2 DIABETES MELLITUS
     Dosage: DOSE- 48 UNITS AM/ 42 UNITS PM
     Route: 051
     Dates: start: 201707

REACTIONS (2)
  - Blood glucose increased [Unknown]
  - Product use issue [Unknown]
